FAERS Safety Report 8130402-1 (Version None)
Quarter: 2012Q1

REPORT INFORMATION
  Report Type: 
  Country: None (occurrence: None)
  Receive Date: 20120210
  Receipt Date: 20120210
  Transmission Date: 20120608
  Serious: Yes (Other)
  Sender: FDA-Public Use
  Company Number: PHHO2004PT01918

PATIENT
  Sex: Female
  Weight: 70 kg

DRUGS (4)
  1. FTY [Suspect]
     Dosage: 5 MG, QD
     Route: 048
     Dates: start: 20030806
  2. TEGRETOL [Concomitant]
     Dosage: 400MG
     Route: 048
     Dates: start: 19990801
  3. FOSAMAX [Concomitant]
     Indication: OSTEOPOROSIS
     Route: 048
     Dates: start: 19990301
  4. LESCOL [Concomitant]
     Dosage: 40MG
     Route: 048
     Dates: start: 20020701

REACTIONS (2)
  - FURUNCLE [None]
  - SQUAMOUS CELL CARCINOMA OF SKIN [None]
